FAERS Safety Report 13713174 (Version 2)
Quarter: 2017Q3

REPORT INFORMATION
  Report Type: Report from Study
  Country: CO (occurrence: CO)
  Receive Date: 20170704
  Receipt Date: 20170803
  Transmission Date: 20171127
  Serious: Yes (Hospitalization, Other)
  Sender: FDA-Public Use
  Company Number: CO-AMGEN-COLSL2017099490

PATIENT
  Age: 64 Year
  Sex: Female

DRUGS (2)
  1. ARANESP [Suspect]
     Active Substance: DARBEPOETIN ALFA
     Indication: NEPHROGENIC ANAEMIA
     Dosage: 100 MCG, Q2WK
     Route: 058
     Dates: start: 20170302
  2. ARANESP [Suspect]
     Active Substance: DARBEPOETIN ALFA
     Dosage: 150 MCG, Q2WK
     Route: 058

REACTIONS (4)
  - Gait disturbance [Unknown]
  - Myalgia [Unknown]
  - Haemorrhage [Unknown]
  - Hernia [Unknown]
